FAERS Safety Report 19937923 (Version 1)
Quarter: 2021Q4

REPORT INFORMATION
  Report Type: Spontaneous
  Country: IT (occurrence: IT)
  Receive Date: 20211011
  Receipt Date: 20211011
  Transmission Date: 20220303
  Serious: Yes (Life-Threatening, Hospitalization, Other)
  Sender: FDA-Public Use
  Company Number: IT-NOVOPROD-853347

PATIENT
  Age: 2 Year
  Sex: Male

DRUGS (1)
  1. NOVOSEVEN [Suspect]
     Active Substance: COAGULATION FACTOR VIIA RECOMBINANT HUMAN
     Indication: Von Willebrand^s disease
     Dosage: UNK
     Route: 065

REACTIONS (3)
  - Pharyngeal haemorrhage [Unknown]
  - Therapy partial responder [Unknown]
  - Off label use [Unknown]
